FAERS Safety Report 7482991-8 (Version None)
Quarter: 2011Q2

REPORT INFORMATION
  Report Type: 
  Country: None (occurrence: None)
  Receive Date: 20110516
  Receipt Date: 20110504
  Transmission Date: 20111010
  Serious: Yes (Death)
  Sender: FDA-Public Use
  Company Number: US-UCBSA-032230

PATIENT

DRUGS (1)
  1. VIMPAT [Suspect]
     Dosage: 50 MG

REACTIONS (2)
  - TREATMENT NONCOMPLIANCE [None]
  - CARDIAC DISORDER [None]
